FAERS Safety Report 24067158 (Version 2)
Quarter: 2024Q3

REPORT INFORMATION
  Report Type: Spontaneous
  Country: DE (occurrence: DE)
  Receive Date: 20240709
  Receipt Date: 20240731
  Transmission Date: 20241017
  Serious: Yes (Disabling)
  Sender: ROCHE
  Company Number: DE-ROCHE-10000018493

PATIENT
  Sex: Female

DRUGS (4)
  1. OCRELIZUMAB [Suspect]
     Active Substance: OCRELIZUMAB
     Indication: Multiple sclerosis
     Route: 042
  2. TYSABRI [Concomitant]
     Active Substance: NATALIZUMAB
  3. GILENYA [Concomitant]
     Active Substance: FINGOLIMOD HYDROCHLORIDE
  4. MAVENCLAD [Concomitant]
     Active Substance: CLADRIBINE

REACTIONS (1)
  - Pustular psoriasis [Unknown]
